FAERS Safety Report 17511973 (Version 1)
Quarter: 2020Q1

REPORT INFORMATION
  Report Type: Spontaneous
  Country: US (occurrence: US)
  Receive Date: 20200307
  Receipt Date: 20200307
  Transmission Date: 20200409
  Serious: Yes (Death, Other)
  Sender: FDA-Public Use
  Company Number: US-FRESENIUS KABI-FK202002301

PATIENT
  Age: 85 Year
  Sex: Female
  Weight: 55.2 kg

DRUGS (5)
  1. HEPARIN SODIUM INJECTION, USP [Suspect]
     Active Substance: HEPARIN SODIUM
     Route: 042
     Dates: start: 20200228
  2. HEPARIN SODIUM INJECTION, USP [Suspect]
     Active Substance: HEPARIN SODIUM
     Indication: PRODUCT USED FOR UNKNOWN INDICATION
     Route: 042
     Dates: start: 20200228
  3. HEPARIN SODIUM INJECTION, USP [Suspect]
     Active Substance: HEPARIN SODIUM
     Route: 042
     Dates: start: 20200228
  4. HEPARIN SODIUM INJECTION, USP [Suspect]
     Active Substance: HEPARIN SODIUM
     Route: 042
     Dates: start: 20200228
  5. HEPARIN SODIUM INJECTION, USP [Suspect]
     Active Substance: HEPARIN SODIUM
     Route: 042
     Dates: start: 20200228

REACTIONS (5)
  - Catheter site haematoma [Unknown]
  - Circulatory collapse [Fatal]
  - Coronary artery dissection [Unknown]
  - Therapeutic product effect decreased [Unknown]
  - Puncture site haemorrhage [Unknown]

NARRATIVE: CASE EVENT DATE: 20200228
